FAERS Safety Report 5956806-0 (Version None)
Quarter: 2008Q4

REPORT INFORMATION
  Report Type: 
  Country: None (occurrence: None)
  Receive Date: 20081031
  Receipt Date: 20080819
  Transmission Date: 20090506
  Serious: No
  Sender: FDA-Public Use
  Company Number: 2008PV036505

PATIENT
  Age: 45 Year
  Sex: Male

DRUGS (2)
  1. SYMLIN [Suspect]
     Indication: DRUG USE FOR UNKNOWN INDICATION
     Dosage: 120 MCG;SC
     Route: 058
     Dates: start: 20080801
  2. SYMLIN [Suspect]
     Dosage: SC
     Route: 058
     Dates: end: 20080801

REACTIONS (1)
  - BLOOD GLUCOSE INCREASED [None]
